FAERS Safety Report 8677028 (Version 4)
Quarter: 2013Q4

REPORT INFORMATION
  Report Type: Spontaneous
  Country: US (occurrence: US)
  Receive Date: 20120723
  Receipt Date: 20131107
  Transmission Date: 20140711
  Serious: Yes (Other)
  Sender: FDA-Public Use
  Company Number: US-009507513-1207USA005430

PATIENT
  Sex: Male

DRUGS (3)
  1. PEG-INTRON [Suspect]
     Indication: HEPATITIS C
     Dosage: UNK
     Dates: start: 20120603
  2. REBETOL [Suspect]
     Indication: HEPATITIS C
     Dosage: UNK
     Dates: start: 20120603
  3. VICTRELIS [Suspect]
     Indication: HEPATITIS C
     Dosage: UNK
     Dates: start: 20120702

REACTIONS (24)
  - Chronic obstructive pulmonary disease [Unknown]
  - Tooth extraction [Unknown]
  - Oral pain [Unknown]
  - Temperature intolerance [Unknown]
  - Pain in extremity [Unknown]
  - Back pain [Unknown]
  - Pollakiuria [Unknown]
  - Hyperhidrosis [Unknown]
  - Thirst [Unknown]
  - Fatigue [Unknown]
  - Eating disorder [Unknown]
  - Asthenia [Unknown]
  - Decreased appetite [Unknown]
  - Decreased appetite [Unknown]
  - Weight decreased [Unknown]
  - Anaemia [Unknown]
  - Dizziness [Unknown]
  - Myalgia [Unknown]
  - Arthralgia [Unknown]
  - Influenza like illness [Unknown]
  - Haemoglobin decreased [Unknown]
  - White blood cell count decreased [Unknown]
  - Dysgeusia [Unknown]
  - Blood iron decreased [Unknown]
